FAERS Safety Report 5355812-7 (Version None)
Quarter: 2007Q2

REPORT INFORMATION
  Report Type: 
  Country: None (occurrence: None)
  Receive Date: 20070611
  Receipt Date: 20070611
  Transmission Date: 20071010
  Serious: No
  Sender: FDA-Public Use
  Company Number: None

PATIENT
  Age: 66 Year
  Sex: Male
  Weight: 98.6 kg

DRUGS (4)
  1. VANCOMYCIN HCL [Suspect]
     Indication: ENDOCARDITIS
     Dosage: 1000MG X 4 DOSES  042
     Dates: start: 20070514
  2. VANCOMYCIN HCL [Suspect]
     Indication: ENDOCARDITIS
     Dosage: 1000MG X 4 DOSES  042
     Dates: start: 20070515
  3. VANCOMYCIN HCL [Suspect]
     Indication: ENDOCARDITIS
     Dosage: 1000MG X 4 DOSES  042
     Dates: start: 20070516
  4. VANCOMYCIN HCL [Suspect]
     Indication: ENDOCARDITIS
     Dosage: 1000MG X 4 DOSES  042
     Dates: start: 20070521

REACTIONS (4)
  - CARDIAC VALVE VEGETATION [None]
  - ENDOCARDITIS [None]
  - POST PROCEDURAL COMPLICATION [None]
  - THROMBOCYTOPENIA [None]
